FAERS Safety Report 18806954 (Version 8)
Quarter: 2021Q2

REPORT INFORMATION
  Report Type: Report from Study
  Country: None (occurrence: GR)
  Receive Date: 20210128
  Receipt Date: 20210518
  Transmission Date: 20210717
  Serious: Yes (Death, Hospitalization, Other)
  Sender: FDA-Public Use
  Company Number: GR-ABBVIE-21K-066-3749250-00

PATIENT
  Age: 84 Year
  Sex: Female
  Weight: 70 kg

DRUGS (8)
  1. DONEGAL [Concomitant]
     Indication: PRODUCT USED FOR UNKNOWN INDICATION
     Route: 048
  2. QUEPIN [Concomitant]
     Active Substance: QUETIAPINE
     Indication: PRODUCT USED FOR UNKNOWN INDICATION
     Route: 048
  3. LECALCIF [Concomitant]
     Active Substance: CHOLECALCIFEROL
     Indication: PRODUCT USED FOR UNKNOWN INDICATION
     Dosage: 1 AMPOULE, EVERY 10 DAYS
     Route: 048
  4. DUODOPA [Suspect]
     Active Substance: CARBIDOPA\LEVODOPA
     Dosage: MORNING DOSE: 9.0 ML; CONTINUOUS RATE: 4.9 ML/H; EXTRA DOSE:?1.9 ML
     Route: 050
  5. DUODOPA [Suspect]
     Active Substance: CARBIDOPA\LEVODOPA
     Indication: PARKINSON^S DISEASE
     Dosage: MORNING DOSE: 9.0 ML; CONTINUOUS RATE: 4.7 ML/H; EXTRA DOSE: 1.9 ML
     Route: 050
     Dates: start: 20180109
  6. CLONOTRIL [Concomitant]
     Active Substance: CLONAZEPAM
     Indication: NIGHTMARE
     Route: 048
  7. CLONOTRIL [Concomitant]
     Active Substance: CLONAZEPAM
     Indication: ABNORMAL DREAMS
     Route: 048
  8. GALOPRAN [Concomitant]
     Indication: PRODUCT USED FOR UNKNOWN INDICATION
     Route: 048

REACTIONS (14)
  - Feeling abnormal [Unknown]
  - Pain [Unknown]
  - Gait inability [Recovering/Resolving]
  - Hallucination [Recovering/Resolving]
  - Myoclonus [Unknown]
  - Device kink [Unknown]
  - Decreased appetite [Recovering/Resolving]
  - Dysphagia [Recovering/Resolving]
  - Movement disorder [Recovering/Resolving]
  - Inflammation [Recovering/Resolving]
  - Death [Fatal]
  - Mental disorder [Recovering/Resolving]
  - Movement disorder [Unknown]
  - Myoclonus [Recovered/Resolved]

NARRATIVE: CASE EVENT DATE: 202101
